FAERS Safety Report 6738087-3 (Version None)
Quarter: 2010Q2

REPORT INFORMATION
  Report Type: 
  Country: None (occurrence: None)
  Receive Date: 20100524
  Receipt Date: 20100512
  Transmission Date: 20101027
  Serious: Yes (Congenital Anomaly)
  Sender: FDA-Public Use
  Company Number: US-JNJFOC-20100505335

PATIENT
  Sex: Male

DRUGS (2)
  1. REGULAR STRENGTH TYLENOL [Suspect]
     Indication: SINUS DISORDER
     Route: 048
  2. REGULAR STRENGTH TYLENOL [Suspect]
     Indication: HEADACHE
     Route: 048

REACTIONS (3)
  - CONGENITAL CARDIOVASCULAR ANOMALY [None]
  - CONGENITAL RENAL DISORDER [None]
  - PRODUCT QUALITY ISSUE [None]
